FAERS Safety Report 4887816-2 (Version None)
Quarter: 2005Q4

REPORT INFORMATION
  Report Type: 
  Country: None (occurrence: None)
  Receive Date: 20051221
  Receipt Date: 20050729
  Transmission Date: 20060501
  Serious: No
  Sender: FDA-Public Use
  Company Number: US-YAMANOUCHI-YPA20050302

PATIENT
  Age: 66 Year
  Sex: Female
  Weight: 61.2356 kg

DRUGS (8)
  1. VESICARE [Suspect]
     Indication: HYPERTONIC BLADDER
     Dosage: 5 MG QD PO
     Route: 048
     Dates: start: 20050724
  2. ZOCOR [Concomitant]
  3. FISH OIL [Concomitant]
  4. CENTRUM [Concomitant]
  5. ASPIRIN [Concomitant]
  6. STOOL SOFTENER [Concomitant]
  7. METAMUCIL-2 [Concomitant]
  8. CALCIUM W/VIT D [Concomitant]

REACTIONS (1)
  - ORAL PAIN [None]
